FAERS Safety Report 6536350-2 (Version None)
Quarter: 2010Q1

REPORT INFORMATION
  Report Type: 
  Country: None (occurrence: None)
  Receive Date: 20100106
  Receipt Date: 20091229
  Transmission Date: 20100710
  Serious: No
  Sender: FDA-Public Use
  Company Number: 20096599

PATIENT
  Age: 25 Year
  Sex: Male

DRUGS (1)
  1. LIORESAL [Suspect]
     Indication: MUSCLE SPASTICITY
     Dosage: 99.9 MCG, DAILY, INTRATHECAL
     Route: 037

REACTIONS (4)
  - IMPLANT SITE EFFUSION [None]
  - IMPLANT SITE HAEMATOMA [None]
  - IMPLANT SITE INFECTION [None]
  - IMPLANT SITE OEDEMA [None]
